FAERS Safety Report 11889989 (Version 2)
Quarter: 2016Q1

REPORT INFORMATION
  Report Type: Spontaneous
  Country: US (occurrence: US)
  Receive Date: 20160105
  Receipt Date: 20160211
  Transmission Date: 20160526
  Serious: Yes (Life-Threatening, Hospitalization, Other)
  Sender: FDA-Public Use
  Company Number: US-009507513-1601USA000845

PATIENT
  Age: 31 Year
  Sex: Female

DRUGS (2)
  1. THERAPY UNSPECIFIED [Suspect]
     Active Substance: UNSPECIFIED INGREDIENT
     Dosage: UNK
  2. AMLODIPINE BESYLATE (+) LOSARTAN POTASSIUM [Suspect]
     Active Substance: AMLODIPINE\LOSARTAN POTASSIUM
     Dosage: UNK

REACTIONS (6)
  - Headache [None]
  - Intentional overdose [Unknown]
  - Right ventricular dysfunction [None]
  - Shock [Recovered/Resolved]
  - Suicide attempt [Recovered/Resolved]
  - Self-medication [None]
